FAERS Safety Report 15318521 (Version 1)
Quarter: 2018Q3

REPORT INFORMATION
  Report Type: Spontaneous
  Country: US (occurrence: US)
  Receive Date: 20180817
  Receipt Date: 20180817
  Transmission Date: 20181010
  Serious: No
  Sender: FDA-Public Use
  Company Number: None

PATIENT
  Age: 21 Year
  Sex: Male

DRUGS (3)
  1. TACROLIMUS CAP 1MG [Suspect]
     Active Substance: TACROLIMUS
  2. PREDNISONE. [Concomitant]
     Active Substance: PREDNISONE
  3. MYCOPHENOLATE [Concomitant]
     Active Substance: MYCOPHENOLIC ACID

REACTIONS (3)
  - Tremor [None]
  - Insomnia [None]
  - Candida infection [None]

NARRATIVE: CASE EVENT DATE: 20180817
